FAERS Safety Report 7092118-2 (Version None)
Quarter: 2010Q4

REPORT INFORMATION
  Report Type: 
  Country: None (occurrence: None)
  Receive Date: 20101101
  Receipt Date: 20101018
  Transmission Date: 20110411
  Serious: Yes (Hospitalization)
  Sender: FDA-Public Use
  Company Number: 020581

PATIENT
  Sex: Female
  Weight: 101.6 kg

DRUGS (37)
  1. ROTIGOTINE [Suspect]
     Indication: PARKINSON'S DISEASE
     Dosage: (6 MG QD), (6 MG QD)
     Dates: start: 20090928, end: 20091020
  2. ROTIGOTINE [Suspect]
     Indication: PARKINSON'S DISEASE
     Dosage: (6 MG QD), (6 MG QD)
     Dates: start: 20100830
  3. CARBIDOPA AND LEVODOPA [Concomitant]
  4. PARCOPA [Concomitant]
  5. SINEMET [Concomitant]
  6. PRIMIDONE [Concomitant]
  7. AZILECT [Concomitant]
  8. VITAMIN B12 /00056201/ [Concomitant]
  9. OXYBUTYNIN [Concomitant]
  10. CLONAZEPAM [Concomitant]
  11. TRAZODONE [Concomitant]
  12. WELLBUTRIN [Concomitant]
  13. FERROUS SULFATE [Concomitant]
  14. ASPIRIN [Concomitant]
  15. LIPITOR [Concomitant]
  16. COREG [Concomitant]
  17. KLONOPIN [Concomitant]
  18. PLAVIX [Concomitant]
  19. DIGOXIN [Concomitant]
  20. COLACE [Concomitant]
  21. PEPCID [Concomitant]
  22. NOVOLOG [Concomitant]
  23. MULTI-VITAMINS [Concomitant]
  24. NIASPAN [Concomitant]
  25. DOMPERIDONE [Concomitant]
  26. LOSARTAN [Concomitant]
  27. RANEXA [Concomitant]
  28. SENNA /00142201/ [Concomitant]
  29. VITAMIN D3 [Concomitant]
  30. LORAZEPAM [Concomitant]
  31. COMBIVENT [Concomitant]
  32. LISINOPRIL [Concomitant]
  33. KLOR-CON [Concomitant]
  34. AMBIEN [Concomitant]
  35. COMTAN [Concomitant]
  36. GLIPIZIDE [Concomitant]
  37. EXELON [Concomitant]

REACTIONS (10)
  - CHEST PAIN [None]
  - DEHYDRATION [None]
  - ELECTROCARDIOGRAM REPOLARISATION ABNORMALITY [None]
  - GROIN PAIN [None]
  - HYPONATRAEMIA [None]
  - LEFT VENTRICULAR HYPERTROPHY [None]
  - NORMOCHROMIC NORMOCYTIC ANAEMIA [None]
  - RENAL FAILURE ACUTE [None]
  - THROMBOCYTOPENIA [None]
  - VASCULAR PSEUDOANEURYSM [None]
